FAERS Safety Report 6445022-4 (Version None)
Quarter: 2009Q4

REPORT INFORMATION
  Report Type: 
  Country: None (occurrence: None)
  Receive Date: 20091118
  Receipt Date: 20091116
  Transmission Date: 20100525
  Serious: Yes (Life-Threatening, Hospitalization, Other)
  Sender: FDA-Public Use
  Company Number: US-MERCK-0911USA00814

PATIENT
  Age: 15 Year
  Sex: Female
  Weight: 50 kg

DRUGS (1)
  1. SINGULAIR [Suspect]
     Indication: ASTHMA
     Route: 048
     Dates: start: 20000101, end: 20090531

REACTIONS (12)
  - AFFECTIVE DISORDER [None]
  - AGITATION [None]
  - ANXIETY [None]
  - DEPRESSION [None]
  - INSOMNIA [None]
  - PERSONALITY DISORDER OF CHILDHOOD [None]
  - SELF INJURIOUS BEHAVIOUR [None]
  - SOCIAL AVOIDANT BEHAVIOUR [None]
  - SUICIDAL IDEATION [None]
  - TIC [None]
  - TOURETTE'S DISORDER [None]
  - TREMOR [None]
